FAERS Safety Report 4271297-6 (Version None)
Quarter: 2004Q1

REPORT INFORMATION
  Report Type: 
  Country: None (occurrence: None)
  Receive Date: 20040113
  Receipt Date: 20040106
  Transmission Date: 20041129
  Serious: Yes (Other)
  Sender: FDA-Public Use
  Company Number: 2003116600

PATIENT
  Age: 50 Year
  Sex: Female
  Weight: 77.1115 kg

DRUGS (5)
  1. LIPITOR [Suspect]
     Indication: BLOOD CHOLESTEROL INCREASED
     Dosage: 10 MG (DAILY), ORAL
     Route: 048
     Dates: start: 20020101
  2. WARFARIN SODIUM [Concomitant]
  3. GEMFIBROZIL [Concomitant]
  4. VALDECOXIB [Concomitant]
  5. ESCITALOPRAM (ESCITALOPRAM) [Concomitant]

REACTIONS (3)
  - OEDEMA PERIPHERAL [None]
  - VAGINAL ERYTHEMA [None]
  - VAGINAL HAEMORRHAGE [None]
